FAERS Safety Report 5646817-7 (Version None)
Quarter: 2008Q1

REPORT INFORMATION
  Report Type: 
  Country: None (occurrence: None)
  Receive Date: 20080303
  Receipt Date: 20080222
  Transmission Date: 20080703
  Serious: Yes (Hospitalization, Other)
  Sender: FDA-Public Use
  Company Number: BR-WYE-H02807908

PATIENT
  Sex: Male
  Weight: 86 kg

DRUGS (8)
  1. RAPAMUNE [Suspect]
     Indication: PROPHYLAXIS AGAINST TRANSPLANT REJECTION
     Route: 048
     Dates: start: 20061114
  2. NPH INSULIN [Concomitant]
     Indication: DIABETES MELLITUS
     Dosage: 50 UNIT EVERY 1 DAY
     Route: 058
     Dates: start: 20031125
  3. DOXEPIN HYDROCHLORIDE [Concomitant]
     Indication: ACNE
     Route: 048
     Dates: start: 20070723
  4. HYDROCHLOROTHIAZIDE [Concomitant]
     Indication: HYPERTENSION
     Route: 048
     Dates: start: 20040922
  5. VENLAFAXINE HYDROCHLORIDE [Concomitant]
     Indication: NEUROLOGICAL SYMPTOM
     Route: 048
     Dates: start: 20060321
  6. AAS [Concomitant]
     Indication: PROPHYLAXIS
     Route: 048
     Dates: start: 20070816
  7. OMEPRAZOLE [Concomitant]
     Indication: PROPHYLAXIS
     Route: 048
     Dates: start: 20030915
  8. ISRADIPINE [Concomitant]
     Indication: HYPERTENSION
     Route: 048
     Dates: start: 20040929

REACTIONS (1)
  - METABOLIC SYNDROME [None]
